FAERS Safety Report 10044353 (Version 2)
Quarter: 2015Q1

REPORT INFORMATION
  Report Type: Spontaneous
  Country: CA (occurrence: None)
  Receive Date: 20140326
  Receipt Date: 20150218
  Transmission Date: 20150720
  Serious: Yes (Death, Life-Threatening)
  Sender: FDA-Public Use
  Company Number: 2014080776

PATIENT
  Age: 75 Year
  Sex: Male

DRUGS (3)
  1. ARGATROBAN (ARGATROBAN) [Concomitant]
  2. HEPARIN SODIUM. [Suspect]
     Active Substance: HEPARIN SODIUM
     Route: 042
     Dates: start: 20120517, end: 20120522
  3. FRAGMIN [Suspect]
     Active Substance: DALTEPARIN SODIUM
     Route: 058
     Dates: start: 2012

REACTIONS (7)
  - Heparin-induced thrombocytopenia [None]
  - Acidosis [None]
  - Condition aggravated [None]
  - Penile necrosis [None]
  - Cardiac disorder [None]
  - Penile haemorrhage [None]
  - Cardiac failure [None]

NARRATIVE: CASE EVENT DATE: 2012
